FAERS Safety Report 4874302-9 (Version None)
Quarter: 2006Q1

REPORT INFORMATION
  Report Type: 
  Country: None (occurrence: None)
  Receive Date: 20060106
  Receipt Date: 20050927
  Transmission Date: 20060701
  Serious: Yes (Hospitalization)
  Sender: FDA-Public Use
  Company Number: US-MERCK-0509USA04470

PATIENT
  Age: 57 Year
  Sex: Female
  Weight: 78 kg

DRUGS (11)
  1. VIOXX [Suspect]
     Indication: EXOSTOSIS
     Route: 048
     Dates: start: 20020208, end: 20020101
  2. ZOCOR [Concomitant]
     Route: 065
  3. VERELAN [Concomitant]
     Route: 065
  4. TENORMIN [Concomitant]
     Route: 065
  5. RENAGEL [Concomitant]
     Route: 065
  6. LASIX [Concomitant]
     Route: 065
  7. CATAPRES [Concomitant]
     Route: 065
  8. HUMULIN [Concomitant]
     Route: 065
  9. VERAPAMIL [Concomitant]
     Route: 065
  10. LEVAQUIN [Concomitant]
     Route: 065
  11. ASPIRIN [Concomitant]
     Route: 065

REACTIONS (17)
  - ASTHENIA [None]
  - BLOOD PRESSURE INCREASED [None]
  - CEREBROVASCULAR ACCIDENT [None]
  - CEREBROVASCULAR INSUFFICIENCY [None]
  - CEREBROVASCULAR STENOSIS [None]
  - DEPRESSION [None]
  - ENCEPHALOPATHY [None]
  - GANGRENE [None]
  - GOITRE [None]
  - HEADACHE [None]
  - IMPAIRED HEALING [None]
  - PERIPHERAL ARTERIAL OCCLUSIVE DISEASE [None]
  - PERIPHERAL VASCULAR DISORDER [None]
  - PSYCHOTIC DISORDER [None]
  - SKIN ULCER [None]
  - UROSEPSIS [None]
  - VISUAL DISTURBANCE [None]
